FAERS Safety Report 5012198-5 (Version None)
Quarter: 2006Q2

REPORT INFORMATION
  Report Type: 
  Country: None (occurrence: None)
  Receive Date: 20060525
  Receipt Date: 20060525
  Transmission Date: 20061013
  Serious: Yes (Disabling)
  Sender: FDA-Public Use
  Company Number: None

PATIENT
  Age: 68 Year
  Sex: Female
  Weight: 52.1637 kg

DRUGS (3)
  1. FLEET PHOSPHO SODA (ORAL SOLUTION) [Suspect]
     Indication: COLONOSCOPY
     Dosage: 6 OZ   ORAL
     Route: 048
     Dates: start: 20051222
  2. BENICAR HCT [Concomitant]
  3. FOSAMAX [Concomitant]

REACTIONS (8)
  - ABDOMINAL PAIN UPPER [None]
  - DIARRHOEA [None]
  - DRUG DISPENSING ERROR [None]
  - INCORRECT DOSE ADMINISTERED [None]
  - NAUSEA [None]
  - RENAL FAILURE [None]
  - TREMOR [None]
  - VOMITING [None]
